FAERS Safety Report 5532998-2 (Version None)
Quarter: 2007Q4

REPORT INFORMATION
  Report Type: 
  Country: None (occurrence: None)
  Receive Date: 20071204
  Receipt Date: 20071127
  Transmission Date: 20080405
  Serious: Yes (Other)
  Sender: FDA-Public Use
  Company Number: PHEH2007US14562

PATIENT
  Age: 80 Year
  Sex: Female

DRUGS (2)
  1. CIMETIDINE [Suspect]
  2. TEKTURNA [Suspect]
     Dosage: 150 MG, BID

REACTIONS (4)
  - CONSTIPATION [None]
  - DRY MOUTH [None]
  - GASTRIC HAEMORRHAGE [None]
  - TREMOR [None]
